FAERS Safety Report 8332920-X (Version None)
Quarter: 2012Q2

REPORT INFORMATION
  Report Type: 
  Country: None (occurrence: None)
  Receive Date: 20120503
  Receipt Date: 20120425
  Transmission Date: 20120825
  Serious: Yes (Hospitalization)
  Sender: FDA-Public Use
  Company Number: JP-VERTEX PHARMACEUTICALS INC.-AE-2012-005684

PATIENT
  Age: 47 Year
  Sex: Male

DRUGS (6)
  1. ALLEGRA [Concomitant]
     Route: 048
     Dates: start: 20120405, end: 20120419
  2. DICLOFENAC SODIUM [Concomitant]
     Route: 054
     Dates: start: 20120405, end: 20120419
  3. REBETOL [Concomitant]
     Indication: HEPATITIS C
     Route: 048
     Dates: start: 20120405, end: 20120419
  4. LANSOPRAZOLE [Concomitant]
     Route: 048
     Dates: start: 20120405, end: 20120419
  5. TELAVIC (TELAPREVIR) [Suspect]
     Indication: HEPATITIS C
     Route: 048
     Dates: start: 20120405, end: 20120419
  6. PEG-INTRON [Concomitant]
     Indication: HEPATITIS C
     Route: 058
     Dates: start: 20120405, end: 20120419

REACTIONS (3)
  - THIRST [None]
  - MUSCULAR WEAKNESS [None]
  - BRADYCARDIA [None]
